FAERS Safety Report 8057285-2 (Version None)
Quarter: 2012Q1

REPORT INFORMATION
  Report Type: 
  Country: None (occurrence: None)
  Receive Date: 20120119
  Receipt Date: 20120118
  Transmission Date: 20120608
  Serious: Yes (Life-Threatening, Hospitalization)
  Sender: FDA-Public Use
  Company Number: PHHY2011DE108052

PATIENT
  Age: 71 Year
  Sex: Female
  Weight: 82 kg

DRUGS (11)
  1. ONBREZ [Suspect]
     Indication: CHRONIC OBSTRUCTIVE PULMONARY DISEASE
     Dosage: 1 DF, QD
     Dates: start: 20110908, end: 20111111
  2. HYDROCHLOROTHIAZIDE [Concomitant]
  3. OMEPRAZOLE [Concomitant]
  4. LEVOTHYROXINE SODIUM [Concomitant]
  5. ONBREZ [Suspect]
     Dosage: 1 DF, QD
     Dates: start: 20111001
  6. SPIRIVA [Concomitant]
     Indication: CHRONIC OBSTRUCTIVE PULMONARY DISEASE
     Dosage: 18 MG, QD
     Dates: start: 20090926
  7. NEBIVOLOL HCL [Concomitant]
  8. ALBUTEROL SULFATE [Concomitant]
     Indication: CHRONIC OBSTRUCTIVE PULMONARY DISEASE
  9. OLMESARTAN MEDOXOMIL [Concomitant]
  10. ASPIRIN [Concomitant]
  11. ATROVENT [Concomitant]
     Indication: CHRONIC OBSTRUCTIVE PULMONARY DISEASE

REACTIONS (2)
  - DEEP VEIN THROMBOSIS [None]
  - PULMONARY EMBOLISM [None]
